FAERS Safety Report 24573139 (Version 2)
Quarter: 2024Q4

REPORT INFORMATION
  Report Type: Spontaneous
  Country: US (occurrence: US)
  Receive Date: 20241101
  Receipt Date: 20241106
  Transmission Date: 20250114
  Serious: Yes (Other)
  Sender: ORGANON
  Company Number: US-ORGANON-O2410USA002517

PATIENT
  Age: 19 Year
  Sex: Female

DRUGS (1)
  1. NEXPLANON [Suspect]
     Active Substance: ETONOGESTREL
     Indication: Contraception
     Dosage: 1 IMPLANT, 68 MG (IN LEFT UPPER ARM)
     Route: 059
     Dates: start: 20240925, end: 20241025

REACTIONS (6)
  - Device expulsion [Recovered/Resolved]
  - Implant site infection [Recovering/Resolving]
  - Device placement issue [Recovered/Resolved]
  - Inappropriate schedule of product administration [Unknown]
  - Implant site pain [Not Recovered/Not Resolved]
  - Implant site abscess [Unknown]

NARRATIVE: CASE EVENT DATE: 20240101
